FAERS Safety Report 24822827 (Version 1)
Quarter: 2025Q1

REPORT INFORMATION
  Report Type: Spontaneous
  Country: US (occurrence: US)
  Receive Date: 20250109
  Receipt Date: 20250109
  Transmission Date: 20250409
  Serious: Yes (Death)
  Sender: AMGEN
  Company Number: US-AMGEN-USASP2024257004

PATIENT

DRUGS (1)
  1. INFLIXIMAB [Suspect]
     Active Substance: INFLIXIMAB
     Indication: Graft versus host disease
     Dosage: 10 MILLIGRAM/KILOGRAM, QWK
     Route: 065

REACTIONS (6)
  - Acute graft versus host disease [Fatal]
  - Sudden cardiac death [Fatal]
  - Death [Fatal]
  - Infection [Fatal]
  - Leukaemia recurrent [Fatal]
  - Off label use [Unknown]
